FAERS Safety Report 10401923 (Version 2)
Quarter: 2014Q3

REPORT INFORMATION
  Report Type: Spontaneous
  Country: US (occurrence: None)
  Receive Date: 20130815
  Receipt Date: 20140815
  Transmission Date: 20150326
  Serious: Yes (Hospitalization, Other)
  Sender: FDA-Public Use
  Company Number: ADR-2012-01967

PATIENT
  Sex: Female

DRUGS (3)
  1. LIORESAL [Suspect]
     Active Substance: BACLOFEN
     Indication: SPINAL CORD INJURY
  2. LIORESAL [Suspect]
     Active Substance: BACLOFEN
     Indication: MUSCLE SPASTICITY
  3. LIORESAL [Suspect]
     Active Substance: BACLOFEN

REACTIONS (7)
  - Muscle spasms [None]
  - Mental status changes [None]
  - Musculoskeletal stiffness [None]
  - Muscle twitching [None]
  - Muscle spasticity [None]
  - Drug withdrawal syndrome [None]
  - Pruritus [None]
